FAERS Safety Report 26066135 (Version 1)
Quarter: 2025Q4

REPORT INFORMATION
  Report Type: Spontaneous
  Country: EU (occurrence: EU)
  Receive Date: 20251119
  Receipt Date: 20251119
  Transmission Date: 20260117
  Serious: Yes (Disabling)
  Sender: MYLAN
  Company Number: None

PATIENT
  Age: 78 Year
  Sex: Male
  Weight: 79.85 kg

DRUGS (32)
  1. ABIRATERONE [Suspect]
     Active Substance: ABIRATERONE
     Indication: Prostate cancer
     Dosage: UNK
  2. ABIRATERONE [Suspect]
     Active Substance: ABIRATERONE
     Dosage: UNK
     Route: 048
  3. ABIRATERONE [Suspect]
     Active Substance: ABIRATERONE
     Dosage: UNK
     Route: 048
  4. ABIRATERONE [Suspect]
     Active Substance: ABIRATERONE
     Dosage: UNK
  5. GOSERELIN [Concomitant]
     Active Substance: GOSERELIN
     Dosage: UNK
  6. GOSERELIN [Concomitant]
     Active Substance: GOSERELIN
     Dosage: UNK
     Route: 065
  7. GOSERELIN [Concomitant]
     Active Substance: GOSERELIN
     Dosage: UNK
     Route: 065
  8. GOSERELIN [Concomitant]
     Active Substance: GOSERELIN
     Dosage: UNK
  9. METFORMIN PAMOATE [Concomitant]
     Active Substance: METFORMIN PAMOATE
     Dosage: UNK
  10. METFORMIN PAMOATE [Concomitant]
     Active Substance: METFORMIN PAMOATE
     Dosage: UNK
     Route: 048
  11. METFORMIN PAMOATE [Concomitant]
     Active Substance: METFORMIN PAMOATE
     Dosage: UNK
     Route: 048
  12. METFORMIN PAMOATE [Concomitant]
     Active Substance: METFORMIN PAMOATE
     Dosage: UNK
  13. PREDNISOLONE [Concomitant]
     Active Substance: PREDNISOLONE
     Dosage: UNK
  14. PREDNISOLONE [Concomitant]
     Active Substance: PREDNISOLONE
     Dosage: UNK
     Route: 048
  15. PREDNISOLONE [Concomitant]
     Active Substance: PREDNISOLONE
     Dosage: UNK
     Route: 048
  16. PREDNISOLONE [Concomitant]
     Active Substance: PREDNISOLONE
     Dosage: UNK
  17. CALCIUM CARBONATE\CHOLECALCIFEROL [Concomitant]
     Active Substance: CALCIUM CARBONATE\CHOLECALCIFEROL
     Dosage: UNK
  18. CALCIUM CARBONATE\CHOLECALCIFEROL [Concomitant]
     Active Substance: CALCIUM CARBONATE\CHOLECALCIFEROL
     Dosage: UNK
     Route: 048
  19. CALCIUM CARBONATE\CHOLECALCIFEROL [Concomitant]
     Active Substance: CALCIUM CARBONATE\CHOLECALCIFEROL
     Dosage: UNK
     Route: 048
  20. CALCIUM CARBONATE\CHOLECALCIFEROL [Concomitant]
     Active Substance: CALCIUM CARBONATE\CHOLECALCIFEROL
     Dosage: UNK
  21. Ciproterona [Concomitant]
     Dosage: UNK
  22. Ciproterona [Concomitant]
     Dosage: UNK
     Route: 048
  23. Ciproterona [Concomitant]
     Dosage: UNK
     Route: 048
  24. Ciproterona [Concomitant]
     Dosage: UNK
  25. TROMALYT [Concomitant]
     Active Substance: ASPIRIN
     Dosage: UNK
  26. TROMALYT [Concomitant]
     Active Substance: ASPIRIN
     Dosage: UNK
     Route: 048
  27. TROMALYT [Concomitant]
     Active Substance: ASPIRIN
     Dosage: UNK
     Route: 048
  28. TROMALYT [Concomitant]
     Active Substance: ASPIRIN
     Dosage: UNK
  29. DONEPEZIL [Concomitant]
     Active Substance: DONEPEZIL
     Dosage: UNK
  30. DONEPEZIL [Concomitant]
     Active Substance: DONEPEZIL
     Dosage: UNK
     Route: 048
  31. DONEPEZIL [Concomitant]
     Active Substance: DONEPEZIL
     Dosage: UNK
     Route: 048
  32. DONEPEZIL [Concomitant]
     Active Substance: DONEPEZIL
     Dosage: UNK

REACTIONS (1)
  - Cerebrovascular accident [Recovering/Resolving]

NARRATIVE: CASE EVENT DATE: 20250924
